FAERS Safety Report 7465875-0 (Version None)
Quarter: 2011Q2

REPORT INFORMATION
  Report Type: 
  Country: None (occurrence: None)
  Receive Date: 20110509
  Receipt Date: 20100422
  Transmission Date: 20111010
  Serious: No
  Sender: FDA-Public Use
  Company Number: CA-ALEXION-A201000459

PATIENT
  Sex: Female

DRUGS (5)
  1. PREDNISONE [Concomitant]
     Dosage: 5 MG, QOD
     Route: 048
  2. SOLIRIS [Suspect]
     Dosage: 900 MG, Q2W
     Route: 042
     Dates: start: 20070720
  3. FOLIC ACID [Concomitant]
     Dosage: 5 MG, QD
     Route: 048
  4. COUMADIN [Concomitant]
     Dosage: 3.5 MG, QD
     Route: 048
  5. SOLIRIS [Suspect]
     Indication: PAROXYSMAL NOCTURNAL HAEMOGLOBINURIA
     Dosage: 600 MG, QW X4W
     Route: 042
     Dates: start: 20070622

REACTIONS (2)
  - URINE COLOUR ABNORMAL [None]
  - NASOPHARYNGITIS [None]
